FAERS Safety Report 13501402 (Version 1)
Quarter: 2017Q2

REPORT INFORMATION
  Report Type: Spontaneous
  Country: US (occurrence: US)
  Receive Date: 20170501
  Receipt Date: 20170501
  Transmission Date: 20170830
  Serious: No
  Sender: FDA-Public Use
  Company Number: US-ROCHE-1893399

PATIENT
  Sex: Female

DRUGS (6)
  1. MEDROL [Concomitant]
     Active Substance: METHYLPREDNISOLONE
     Route: 065
  2. MYCOPHENOLATE [Concomitant]
     Active Substance: MYCOPHENOLIC ACID
     Route: 065
  3. ESBRIET [Suspect]
     Active Substance: PIRFENIDONE
     Dosage: 1 CAP PO TID FOR 1 WEEK, 2 CAPS TID FOR 1 WEEK
     Route: 048
  4. ESBRIET [Suspect]
     Active Substance: PIRFENIDONE
     Indication: IDIOPATHIC PULMONARY FIBROSIS
     Dosage: 1 CAP PO TID FOR 1 WEEK, 2 CAPS TID FOR 1 WEEK
     Route: 048
     Dates: start: 20170209
  5. ESBRIET [Suspect]
     Active Substance: PIRFENIDONE
     Route: 048
  6. METOPROLOL. [Concomitant]
     Active Substance: METOPROLOL
     Dosage: ER
     Route: 065

REACTIONS (1)
  - Fatigue [Not Recovered/Not Resolved]
